FAERS Safety Report 17805533 (Version 1)
Quarter: 2020Q2

REPORT INFORMATION
  Report Type: Spontaneous
  Country: TW (occurrence: TW)
  Receive Date: 20200519
  Receipt Date: 20200519
  Transmission Date: 20200714
  Serious: Yes (Hospitalization)
  Sender: FDA-Public Use
  Company Number: TW-AMNEAL PHARMACEUTICALS-2020-AMRX-01422

PATIENT
  Age: 66 Year
  Sex: Male

DRUGS (2)
  1. ADRENACLICK [Suspect]
     Active Substance: EPINEPHRINE
     Indication: GINGIVAL BLEEDING
     Dosage: 2 MILLIGRAM
     Route: 030
  2. WARFARIN [Concomitant]
     Active Substance: WARFARIN
     Indication: ATRIAL FIBRILLATION
     Dosage: UNK
     Route: 065

REACTIONS (5)
  - Tachycardia [Recovered/Resolved]
  - Palpitations [Recovered/Resolved]
  - Accidental overdose [Unknown]
  - Tremor [Recovered/Resolved]
  - Incorrect route of product administration [Unknown]
